FAERS Safety Report 4538618-8 (Version None)
Quarter: 2004Q4

REPORT INFORMATION
  Report Type: 
  Country: None (occurrence: None)
  Receive Date: 20041227
  Receipt Date: 20041216
  Transmission Date: 20050328
  Serious: Yes (Hospitalization)
  Sender: FDA-Public Use
  Company Number: DE-BRISTOL-MYERS SQUIBB COMPANY-12798948

PATIENT
  Age: 28 Year
  Sex: Female

DRUGS (6)
  1. REYATAZ [Suspect]
     Indication: HIV INFECTION
     Dates: start: 20031020
  2. VIREAD [Suspect]
     Indication: HIV INFECTION
     Dates: start: 20020905
  3. COMBIVIR [Suspect]
     Indication: HIV INFECTION
     Dates: start: 20031020
  4. NORVIR [Suspect]
     Indication: HIV INFECTION
     Dates: start: 20031020
  5. DARAPRIM [Suspect]
     Indication: TOXOPLASMOSIS
     Dates: start: 20010101
  6. LEUCOVORIN [Suspect]
     Dates: start: 20010101

REACTIONS (1)
  - ASEPTIC NECROSIS BONE [None]
